FAERS Safety Report 4449997-4 (Version None)
Quarter: 2004Q3

REPORT INFORMATION
  Report Type: 
  Country: None (occurrence: None)
  Receive Date: 20040915
  Receipt Date: 20040906
  Transmission Date: 20050211
  Serious: Yes (Hospitalization)
  Sender: FDA-Public Use
  Company Number: PHNU2004PL03153

PATIENT
  Sex: Female

DRUGS (4)
  1. ESTRADERM [Suspect]
     Indication: HORMONE REPLACEMENT THERAPY
     Dosage: 4MG TWICE A WEEK
     Route: 062
  2. ESTRADERM [Suspect]
     Dosage: 2MG TWICE A WEEK
     Route: 062
  3. ORGAMETRIL [Concomitant]
     Dosage: 2.5 MG, BID
     Route: 048
  4. LACRIMAL [Concomitant]
     Dosage: 2 DRP, QD
     Dates: start: 20040601

REACTIONS (4)
  - BURNING SENSATION [None]
  - KERATOCONJUNCTIVITIS SICCA [None]
  - PAIN IN EXTREMITY [None]
  - SKIN HYPERTROPHY [None]
